FAERS Safety Report 7747356-X (Version None)
Quarter: 2011Q3

REPORT INFORMATION
  Report Type: 
  Country: None (occurrence: None)
  Receive Date: 20110913
  Receipt Date: 20110908
  Transmission Date: 20111222
  Serious: Yes (Death, Hospitalization)
  Sender: FDA-Public Use
  Company Number: US-GLAXOSMITHKLINE-A0884659A

PATIENT
  Age: 81 Year
  Sex: Female

DRUGS (6)
  1. WARFARIN SODIUM [Concomitant]
  2. DARVOCET-N 100 [Concomitant]
  3. AVANDIA [Suspect]
     Indication: DIABETES MELLITUS
     Dosage: 8MG PER DAY
     Route: 048
     Dates: start: 20030918, end: 20070520
  4. LIPITOR [Concomitant]
  5. TOPROL-XL [Concomitant]
  6. FUROSEMIDE [Concomitant]

REACTIONS (16)
  - ATRIAL FIBRILLATION [None]
  - ANAEMIA [None]
  - CARDIOMEGALY [None]
  - MITRAL VALVE INCOMPETENCE [None]
  - ISCHAEMIC STROKE [None]
  - TRICUSPID VALVE INCOMPETENCE [None]
  - BRADYCARDIA [None]
  - CARDIAC FAILURE CONGESTIVE [None]
  - ARTERIOSCLEROSIS CORONARY ARTERY [None]
  - INFERIOR VENA CAVA DILATATION [None]
  - RESPIRATORY DISTRESS [None]
  - HEAD INJURY [None]
  - HYPOTENSION [None]
  - GASTROINTESTINAL HAEMORRHAGE [None]
  - PLEURAL EFFUSION [None]
  - ARRHYTHMIA [None]
